FAERS Safety Report 7241430-2 (Version None)
Quarter: 2011Q1

REPORT INFORMATION
  Report Type: 
  Country: None (occurrence: None)
  Receive Date: 20110124
  Receipt Date: 20110110
  Transmission Date: 20110831
  Serious: Yes (Other)
  Sender: FDA-Public Use
  Company Number: GXKR2010US04814

PATIENT
  Age: 35 Year
  Sex: Male

DRUGS (9)
  1. DAPSONE [Concomitant]
     Dosage: UNK
  2. CLARITHROMYCIN [Concomitant]
     Dosage: UNK
  3. RITONAVIR [Concomitant]
     Dosage: UNK
  4. SERTRALINE [Concomitant]
     Dosage: UNK
  5. LEVETIRACETAM [Suspect]
     Indication: PARTIAL SEIZURES
     Dosage: 500 MG, BID
     Route: 048
  6. TRUVADA [Concomitant]
     Dosage: UNK
  7. LEVETIRACETAM [Suspect]
     Dosage: 1500 MG, BID
     Route: 048
  8. CLONAZEPAM [Concomitant]
     Dosage: UNK
  9. RIFABUTIN [Concomitant]
     Dosage: UNK

REACTIONS (15)
  - THROMBOCYTOPENIA [None]
  - HAEMOGLOBIN DECREASED [None]
  - BLOOD ALKALINE PHOSPHATASE INCREASED [None]
  - PLATELET COUNT DECREASED [None]
  - BLOOD BILIRUBIN INCREASED [None]
  - POIKILOCYTOSIS [None]
  - POLYCHROMASIA [None]
  - BLOOD ALBUMIN DECREASED [None]
  - PANCYTOPENIA [None]
  - OCCULT BLOOD POSITIVE [None]
  - PETECHIAE [None]
  - RETICULOCYTE COUNT INCREASED [None]
  - WHITE BLOOD CELL COUNT DECREASED [None]
  - GRANULOCYTES ABNORMAL [None]
  - PLATELET DISORDER [None]
